FAERS Safety Report 25396420 (Version 1)
Quarter: 2025Q2

REPORT INFORMATION
  Report Type: Spontaneous
  Country: US (occurrence: None)
  Receive Date: 20250603
  Receipt Date: 20250603
  Transmission Date: 20250717
  Serious: Yes (Other)
  Sender: FDA-CTU
  Company Number: None

PATIENT
  Age: 29 Year
  Sex: Female
  Weight: 65 kg

DRUGS (1)
  1. SERTRALINE [Suspect]
     Active Substance: SERTRALINE HYDROCHLORIDE
     Indication: Obsessive-compulsive disorder
     Dates: start: 20230702, end: 20230811

REACTIONS (4)
  - Restlessness [None]
  - Insomnia [None]
  - Hyperhidrosis [None]
  - Orgasm abnormal [None]

NARRATIVE: CASE EVENT DATE: 20230811
